FAERS Safety Report 11735330 (Version 1)
Quarter: 2015Q4

REPORT INFORMATION
  Report Type: Report from Study
  Country: IE (occurrence: IE)
  Receive Date: 20151113
  Receipt Date: 20151113
  Transmission Date: 20160304
  Serious: Yes (Death, Hospitalization, Other)
  Sender: FDA-Public Use
  Company Number: PHHO2015IE016349

PATIENT
  Age: 76 Year
  Sex: Male
  Weight: 85.3 kg

DRUGS (5)
  1. AZACITIDINE. [Concomitant]
     Active Substance: AZACITIDINE
     Indication: MYELODYSPLASTIC SYNDROME
     Dosage: UNK, CYC
     Route: 058
     Dates: end: 20150827
  2. RAMIPRIL. [Concomitant]
     Active Substance: RAMIPRIL
     Indication: CARDIAC DISORDER
     Dosage: 1.20 MG, QD
     Route: 065
     Dates: start: 20150904
  3. ASPIRIN. [Concomitant]
     Active Substance: ASPIRIN
     Indication: CARDIAC DISORDER
     Dosage: 75.0 MG, QD
     Route: 065
     Dates: start: 20150904
  4. GLYCERYL TRINITRATE PATCH [Concomitant]
     Indication: CHEST DISCOMFORT
     Dosage: 5.0 MG, SINGLE
     Route: 061
  5. ELTROMBOPAG [Suspect]
     Active Substance: ELTROMBOPAG
     Indication: MYELODYSPLASTIC SYNDROME
     Dosage: CODE NOT BROKEN
     Route: 048
     Dates: start: 20150819, end: 20150901

REACTIONS (2)
  - Atrial fibrillation [Not Recovered/Not Resolved]
  - Acute myocardial infarction [Fatal]

NARRATIVE: CASE EVENT DATE: 20150829
